FAERS Safety Report 6632343-5 (Version None)
Quarter: 2010Q1

REPORT INFORMATION
  Report Type: 
  Country: None (occurrence: None)
  Receive Date: 20100312
  Receipt Date: 20100308
  Transmission Date: 20100710
  Serious: Yes (Death, Life-Threatening)
  Sender: FDA-Public Use
  Company Number: D0066743A

PATIENT
  Sex: Male

DRUGS (18)
  1. FORTUM [Suspect]
     Indication: SEPSIS
     Dosage: 2G THREE TIMES PER DAY
     Route: 042
     Dates: start: 20080221, end: 20080226
  2. ZOVIRAX [Suspect]
     Indication: ENCEPHALITIS HERPES
     Dosage: 750MG THREE TIMES PER DAY
     Route: 042
     Dates: start: 20080221, end: 20080225
  3. DARAPRIM [Suspect]
     Indication: TOXOPLASMOSIS
     Dosage: 25MG TWICE PER DAY
     Route: 048
     Dates: start: 20080225
  4. SULFADIAZINE [Suspect]
     Indication: TOXOPLASMOSIS
     Dosage: 1.5G THREE TIMES PER DAY
     Route: 042
     Dates: start: 20080225, end: 20080306
  5. TAZOBAC [Suspect]
     Indication: SEPSIS
     Dosage: 4.5MG THREE TIMES PER DAY
     Route: 042
     Dates: start: 20080226, end: 20080306
  6. ASPISOL [Suspect]
     Indication: THROMBOSIS PROPHYLAXIS
     Route: 042
     Dates: start: 20080221
  7. HALDOL [Suspect]
     Indication: HALLUCINATION
     Route: 042
     Dates: start: 20080221, end: 20080302
  8. PARACETAMOL [Suspect]
     Route: 048
     Dates: start: 20080221, end: 20080306
  9. FRAGMIN [Suspect]
     Indication: THROMBOSIS PROPHYLAXIS
     Dosage: .2ML IN THE MORNING
     Route: 058
     Dates: start: 20080221, end: 20080306
  10. INSUMAN RAPID [Suspect]
     Route: 042
     Dates: start: 20080221, end: 20080308
  11. VANCOMYCIN [Suspect]
     Dosage: 1G TWICE PER DAY
     Route: 042
     Dates: start: 20080221
  12. TAVOR [Suspect]
     Indication: HALLUCINATION
     Route: 042
     Dates: start: 20080221
  13. CONTRAST MEDIUM [Suspect]
     Route: 042
     Dates: start: 20080222
  14. NEXIUM [Suspect]
     Indication: PROPHYLAXIS
     Route: 042
     Dates: start: 20080222
  15. TAVANIC [Suspect]
     Indication: SEPSIS
     Dosage: 500MG TWICE PER DAY
     Route: 042
     Dates: start: 20080301, end: 20080306
  16. MULTIPLE MEDICATION [Suspect]
     Route: 065
  17. SULTANOL [Concomitant]
     Route: 055
  18. MULTIPLE MEDICATION [Concomitant]
     Route: 065

REACTIONS (11)
  - ACNE [None]
  - BLISTER [None]
  - DYSPNOEA [None]
  - HYPONATRAEMIA [None]
  - ORAL MUCOSA EROSION [None]
  - PYREXIA [None]
  - RASH MACULAR [None]
  - RESTLESSNESS [None]
  - SEPTIC SHOCK [None]
  - STEVENS-JOHNSON SYNDROME [None]
  - TOXIC EPIDERMAL NECROLYSIS [None]
